FAERS Safety Report 6060969-9 (Version None)
Quarter: 2009Q1

REPORT INFORMATION
  Report Type: 
  Country: None (occurrence: None)
  Receive Date: 20090129
  Receipt Date: 20090129
  Transmission Date: 20090719
  Serious: Yes (Life-Threatening, Hospitalization)
  Sender: FDA-Public Use
  Company Number: None

PATIENT
  Age: 57 Year
  Sex: Male
  Weight: 58.1 kg

DRUGS (2)
  1. DEXTRAN 40 10% IN DEXTROSE 5% [Suspect]
     Indication: ACUTE RESPIRATORY DISTRESS SYNDROME
     Dates: start: 20081211, end: 20081211
  2. DEXTRAN 40 10% IN DEXTROSE 5% [Suspect]
     Indication: RENAL TUBULAR NECROSIS
     Dates: start: 20081211, end: 20081211

REACTIONS (3)
  - ACUTE RESPIRATORY DISTRESS SYNDROME [None]
  - LUNG INJURY [None]
  - RENAL TUBULAR NECROSIS [None]
